FAERS Safety Report 6068070-5 (Version None)
Quarter: 2009Q1

REPORT INFORMATION
  Report Type: 
  Country: None (occurrence: None)
  Receive Date: 20090206
  Receipt Date: 20090126
  Transmission Date: 20090719
  Serious: Yes (Other)
  Sender: FDA-Public Use
  Company Number: CA-PURDUE-CAN_2008_0000828

PATIENT
  Age: 24 Year
  Sex: Male

DRUGS (4)
  1. VALIUM [Suspect]
     Indication: DRUG USE FOR UNKNOWN INDICATION
  2. OXYCONTIN [Suspect]
     Indication: DRUG USE FOR UNKNOWN INDICATION
  3. COCAINE [Suspect]
     Indication: DRUG USE FOR UNKNOWN INDICATION
  4. METAMFETAMINE HYDROCHLORIDE [Suspect]
     Indication: DRUG USE FOR UNKNOWN INDICATION

REACTIONS (4)
  - EUPHORIC MOOD [None]
  - HALLUCINATION, AUDITORY [None]
  - HOMICIDE [None]
  - SUBSTANCE ABUSE [None]
